FAERS Safety Report 22680673 (Version 2)
Quarter: 2024Q3

REPORT INFORMATION
  Report Type: Spontaneous
  Country: US (occurrence: US)
  Receive Date: 20230707
  Receipt Date: 20240715
  Transmission Date: 20241017
  Serious: No
  Sender: BIOCON
  Company Number: US-MYLANLABS-2023M1051171

PATIENT
  Sex: Female
  Weight: 88.8 kg

DRUGS (2)
  1. FULPHILA [Suspect]
     Active Substance: PEGFILGRASTIM-JMDB
     Indication: Diabetes mellitus
     Dosage: 0.6 MILLILITER, Q3W (EVERY 3 WEEKS)
     Route: 058
  2. DEVICE [Suspect]
     Active Substance: DEVICE
     Indication: Diabetes mellitus

REACTIONS (3)
  - Device mechanical issue [Unknown]
  - Device leakage [Unknown]
  - Off label use [Unknown]
